FAERS Safety Report 15504359 (Version 1)
Quarter: 2018Q4

REPORT INFORMATION
  Report Type: Spontaneous
  Country: US (occurrence: US)
  Receive Date: 20181009
  Receipt Date: 20181009
  Transmission Date: 20190205
  Serious: Yes (Other)
  Sender: FDA-Public Use
  Company Number: None

PATIENT
  Age: 62 Year
  Sex: Male
  Weight: 69.75 kg

DRUGS (2)
  1. HYDROXYUREA. [Suspect]
     Active Substance: HYDROXYUREA
     Indication: POLYCYTHAEMIA VERA
     Dosage: ?          QUANTITY:1 CAPSULE(S);?
     Route: 048
  2. FLUOROURACIL CREAM 5% [Concomitant]
     Active Substance: FLUOROURACIL

REACTIONS (3)
  - Skin disorder [None]
  - Deformity [None]
  - Skin cancer [None]
